FAERS Safety Report 9720497 (Version 2)
Quarter: 2014Q1

REPORT INFORMATION
  Report Type: Report from Study
  Country: GB (occurrence: GB)
  Receive Date: 20131129
  Receipt Date: 20140130
  Transmission Date: 20141002
  Serious: Yes (Hospitalization)
  Sender: FDA-Public Use
  Company Number: GB-ROCHE-1311746

PATIENT
  Age: 36 Year
  Sex: Female

DRUGS (8)
  1. OMALIZUMAB [Suspect]
     Indication: ASTHMA
     Route: 065
     Dates: start: 20130909
  2. OMALIZUMAB [Suspect]
     Route: 065
     Dates: start: 20131007
  3. OMALIZUMAB [Suspect]
     Route: 065
     Dates: start: 20131104
  4. FEXOFENADINE [Concomitant]
  5. AMINOPHYLLINE [Concomitant]
  6. LANSOPRAZOLE [Concomitant]
  7. SALBUTAMOL [Concomitant]
  8. PREDNISONE [Concomitant]

REACTIONS (2)
  - Anaphylactic reaction [Recovered/Resolved]
  - Asthma [Unknown]
